FAERS Safety Report 7933806 (Version 2)
Quarter: 2014Q4

REPORT INFORMATION
  Report Type: Report from Study
  Country: US (occurrence: US)
  Receive Date: 20110506
  Receipt Date: 20141202
  Transmission Date: 20150529
  Serious: Yes (Other)
  Sender: FDA-Public Use
  Company Number: US-ROCHE-774225

PATIENT
  Age: 47 Year
  Sex: Female

DRUGS (3)
  1. RIBAVIRIN. [Suspect]
     Active Substance: RIBAVIRIN
     Indication: HEPATITIS C
     Dosage: IN DIVIDED DOSES
     Route: 048
  2. PEGASYS [Suspect]
     Active Substance: PEGINTERFERON ALFA-2A
     Indication: HEPATITIS C
     Route: 058
  3. BUSPAR [Concomitant]
     Active Substance: BUSPIRONE HYDROCHLORIDE
     Indication: ANXIETY
     Route: 065

REACTIONS (14)
  - Hypoaesthesia [Unknown]
  - Vision blurred [Unknown]
  - Suicidal ideation [Unknown]
  - Psoriasis [Unknown]
  - Loss of consciousness [Unknown]
  - Haematology test abnormal [Unknown]
  - Depression [Unknown]
  - Chest pain [Unknown]
  - Dizziness [Unknown]
  - Diarrhoea [Unknown]
  - Appendicectomy [Unknown]
  - Accidental overdose [Unknown]
  - Irritability [Unknown]
  - Nasal discomfort [Not Recovered/Not Resolved]

NARRATIVE: CASE EVENT DATE: 20110128
